FAERS Safety Report 16524578 (Version 6)
Quarter: 2019Q3

REPORT INFORMATION
  Report Type: Spontaneous
  Country: US (occurrence: US)
  Receive Date: 20190702
  Receipt Date: 20190815
  Transmission Date: 20191004
  Serious: No
  Sender: FDA-Public Use
  Company Number: US-009507513-1907USA001308

PATIENT
  Age: 19 Year
  Sex: Female
  Weight: 69.84 kg

DRUGS (2)
  1. NEXPLANON [Suspect]
     Active Substance: ETONOGESTREL
     Indication: CONTRACEPTION
     Dosage: 1 IMPLANT EVERY 3 YEARS
     Route: 059
     Dates: start: 20190107, end: 20190708
  2. NEXPLANON [Suspect]
     Active Substance: ETONOGESTREL
     Indication: UTERINE HAEMORRHAGE
     Dosage: 1 IMPLANT
     Route: 059
     Dates: start: 20190708

REACTIONS (8)
  - Complication associated with device [Recovered/Resolved]
  - Implant site pain [Recovered/Resolved]
  - Product use in unapproved indication [Unknown]
  - Device kink [Recovered/Resolved]
  - Device deployment issue [Recovered/Resolved]
  - Pain in extremity [Recovered/Resolved]
  - Limb discomfort [Recovered/Resolved]
  - Discomfort [Recovered/Resolved]

NARRATIVE: CASE EVENT DATE: 2019
